FAERS Safety Report 23046842 (Version 2)
Quarter: 2023Q4

REPORT INFORMATION
  Report Type: Spontaneous
  Country: US (occurrence: US)
  Receive Date: 20231009
  Receipt Date: 20231017
  Transmission Date: 20240109
  Serious: Yes (Life-Threatening, Hospitalization, Disabling, Other)
  Sender: FDA-Public Use
  Company Number: US-009507513-2310USA001908

PATIENT
  Age: 73 Year
  Sex: Male

DRUGS (1)
  1. KEYTRUDA [Suspect]
     Active Substance: PEMBROLIZUMAB
     Indication: Adrenal neoplasm
     Dosage: UNK
     Dates: start: 202307, end: 202308

REACTIONS (7)
  - Meningitis aseptic [Not Recovered/Not Resolved]
  - Myositis [Not Recovered/Not Resolved]
  - Guillain-Barre syndrome [Not Recovered/Not Resolved]
  - Paralysis [Not Recovered/Not Resolved]
  - Miller Fisher syndrome [Not Recovered/Not Resolved]
  - Endotracheal intubation [Recovered/Resolved]
  - Tracheostomy [Unknown]

NARRATIVE: CASE EVENT DATE: 20230101
